FAERS Safety Report 19485249 (Version 1)
Quarter: 2021Q3

REPORT INFORMATION
  Report Type: Spontaneous
  Country: GB (occurrence: GB)
  Receive Date: 20210702
  Receipt Date: 20210702
  Transmission Date: 20211014
  Serious: Yes (Death, Hospitalization)
  Sender: FDA-Public Use
  Company Number: GB-JNJFOC-20210651715

PATIENT
  Age: 25 Year
  Sex: Male

DRUGS (1)
  1. PARACETAMOL [Suspect]
     Active Substance: ACETAMINOPHEN
     Indication: PRODUCT USED FOR UNKNOWN INDICATION
     Route: 065

REACTIONS (7)
  - Toxicity to various agents [Fatal]
  - Intentional self-injury [Fatal]
  - Acute hepatic failure [Fatal]
  - Cardiovascular disorder [Fatal]
  - Acute kidney injury [Fatal]
  - Hypovolaemia [Fatal]
  - Coma [Fatal]
